FAERS Safety Report 20226004 (Version 6)
Quarter: 2022Q2

REPORT INFORMATION
  Report Type: Report from Study
  Country: BR (occurrence: BR)
  Receive Date: 20211224
  Receipt Date: 20220519
  Transmission Date: 20220721
  Serious: Yes (Hospitalization, Other)
  Sender: FDA-Public Use
  Company Number: BR-ABBVIE-21K-020-4210974-00

PATIENT
  Age: 68 Year
  Sex: Male
  Weight: 98 kg

DRUGS (10)
  1. SKYRIZI [Suspect]
     Active Substance: RISANKIZUMAB-RZAA
     Indication: Psoriasis
     Route: 058
     Dates: start: 20211101
  2. OLMESARTAN MEDOXOMIL [Concomitant]
     Active Substance: OLMESARTAN MEDOXOMIL
     Indication: Product used for unknown indication
     Dosage: REPORTER THINKS IT WAS FOR PRESSURE
  3. LERCANIDIPINE HYDROCHLORIDE [Concomitant]
     Active Substance: LERCANIDIPINE HYDROCHLORIDE
     Indication: Product used for unknown indication
  4. NEBIVOLOL HYDROCHLORIDE [Concomitant]
     Active Substance: NEBIVOLOL HYDROCHLORIDE
     Indication: Product used for unknown indication
  5. PREGABALIN [Concomitant]
     Active Substance: PREGABALIN
     Indication: Arthralgia
  6. MOTILEX [Concomitant]
     Indication: Product used for unknown indication
  7. AZULFIDINE [Concomitant]
     Active Substance: SULFASALAZINE
     Indication: Product used for unknown indication
  8. IMPERE [Concomitant]
     Indication: Product used for unknown indication
  9. MACRODANTIN [Concomitant]
     Active Substance: NITROFURANTOIN
     Indication: Prophylaxis urinary tract infection
  10. REDOXON [Concomitant]
     Indication: Immunomodulatory therapy

REACTIONS (16)
  - Abscess [Recovered/Resolved]
  - Radiation proctitis [Recovered/Resolved]
  - Anal fistula [Recovered/Resolved]
  - Post procedural complication [Unknown]
  - Fistula [Unknown]
  - Wound haemorrhage [Unknown]
  - Anal fistula infection [Unknown]
  - Fistula [Recovering/Resolving]
  - Fistula inflammation [Recovered/Resolved]
  - Fistula inflammation [Recovering/Resolving]
  - Male genital tract fistula [Recovering/Resolving]
  - COVID-19 [Unknown]
  - Infected fistula [Recovered/Resolved]
  - Scrotal erythema [Unknown]
  - Scrotal swelling [Unknown]
  - Scrotal pain [Unknown]

NARRATIVE: CASE EVENT DATE: 20211101
